FAERS Safety Report 17237152 (Version 5)
Quarter: 2020Q1

REPORT INFORMATION
  Report Type: Spontaneous
  Country: US (occurrence: US)
  Receive Date: 20200106
  Receipt Date: 20200327
  Transmission Date: 20200409
  Serious: Yes (Hospitalization, Other)
  Sender: FDA-Public Use
  Company Number: US-PFIZER INC-2019492095

PATIENT
  Age: 71 Year
  Sex: Female
  Weight: 56.24 kg

DRUGS (5)
  1. LYRICA [Suspect]
     Active Substance: PREGABALIN
     Indication: COMPLEX REGIONAL PAIN SYNDROME
     Dosage: 25 MG, 3X/DAY
     Route: 048
  2. LYRICA [Suspect]
     Active Substance: PREGABALIN
     Indication: NERVE INJURY
     Dosage: 25 MG, 2X/DAY
     Route: 048
  3. NORCO [Concomitant]
     Active Substance: ACETAMINOPHEN\HYDROCODONE BITARTRATE
     Dosage: UNK
     Dates: start: 201803
  4. LYRICA [Suspect]
     Active Substance: PREGABALIN
     Indication: COMPLEX REGIONAL PAIN SYNDROME
     Dosage: 75 MG, 2X/DAY
     Route: 048
     Dates: start: 2019
  5. LYRICA [Suspect]
     Active Substance: PREGABALIN
     Indication: THROMBOSIS
     Dosage: 25 MG, 4X/DAY
     Route: 048

REACTIONS (10)
  - Product dispensing error [Unknown]
  - Emotional distress [Not Recovered/Not Resolved]
  - Suicidal ideation [Recovered/Resolved]
  - Malaise [Not Recovered/Not Resolved]
  - Pain [Not Recovered/Not Resolved]
  - Depression [Recovered/Resolved]
  - Affective disorder [Recovering/Resolving]
  - Neuropathy peripheral [Not Recovered/Not Resolved]
  - Product use in unapproved indication [Not Recovered/Not Resolved]
  - Off label use [Not Recovered/Not Resolved]

NARRATIVE: CASE EVENT DATE: 20190305
